FAERS Safety Report 23081405 (Version 1)
Quarter: 2023Q4

REPORT INFORMATION
  Report Type: Spontaneous
  Country: CA (occurrence: CA)
  Receive Date: 20231018
  Receipt Date: 20231018
  Transmission Date: 20240110
  Serious: Yes (Hospitalization, Other)
  Sender: FDA-Public Use
  Company Number: CA-ABBVIE-5453829

PATIENT
  Sex: Female

DRUGS (1)
  1. HUMIRA [Suspect]
     Active Substance: ADALIMUMAB
     Indication: Ankylosing spondylitis
     Route: 058

REACTIONS (7)
  - Cellulitis [Unknown]
  - Erythema [Unknown]
  - Diarrhoea [Unknown]
  - Illness [Unknown]
  - Pain [Unknown]
  - Gait disturbance [Unknown]
  - Peripheral swelling [Unknown]
